FAERS Safety Report 4934786-4 (Version None)
Quarter: 2006Q1

REPORT INFORMATION
  Report Type: 
  Country: None (occurrence: None)
  Receive Date: 20060307
  Receipt Date: 20060214
  Transmission Date: 20060701
  Serious: Yes (Life-Threatening, Hospitalization, Disabling)
  Sender: FDA-Public Use
  Company Number: US-MERCK-0602USA04269

PATIENT
  Sex: Male
  Weight: 43 kg

DRUGS (2)
  1. RITONAVIR [Suspect]
     Route: 065
  2. CRIXIVAN [Suspect]
     Indication: HIV INFECTION
     Route: 048

REACTIONS (2)
  - NEPHRITIS INTERSTITIAL [None]
  - RENAL FAILURE ACUTE [None]
